FAERS Safety Report 9517905 (Version 1)
Quarter: 2013Q3

REPORT INFORMATION
  Report Type: Report from Study
  Country: JP (occurrence: JP)
  Receive Date: 20130912
  Receipt Date: 20130912
  Transmission Date: 20140515
  Serious: Yes (Hospitalization, Other)
  Sender: FDA-Public Use
  Company Number: JP-ROCHE-1271352

PATIENT
  Age: 33 Year
  Sex: Female
  Weight: 50 kg

DRUGS (13)
  1. METHOXY POLYETHYLENE GLYCOL-EPOETIN BETA [Suspect]
     Indication: NEPHROGENIC ANAEMIA
     Route: 058
     Dates: start: 20120314
  2. ROCALTROL [Concomitant]
     Route: 048
     Dates: end: 20130109
  3. ATELEC [Concomitant]
     Route: 048
  4. ARTIST [Concomitant]
     Route: 048
     Dates: end: 20121113
  5. ARTIST [Concomitant]
     Route: 048
     Dates: start: 20121114, end: 20130124
  6. RASILEZ [Concomitant]
     Route: 048
  7. CARDENALIN [Concomitant]
     Route: 048
     Dates: end: 20120911
  8. CARDENALIN [Concomitant]
     Route: 048
     Dates: start: 20120912
  9. CARDENALIN [Concomitant]
     Route: 048
     Dates: start: 20130124
  10. ALLEGRA [Concomitant]
     Route: 048
  11. OLMETEC [Concomitant]
     Route: 048
  12. FERROMIA [Concomitant]
     Route: 048
     Dates: start: 20120222
  13. HOKUNALIN [Concomitant]
     Route: 062
     Dates: start: 20120404, end: 20120710

REACTIONS (2)
  - Hypertension [Recovering/Resolving]
  - Renal impairment [Unknown]
